FAERS Safety Report 16369828 (Version 1)
Quarter: 2019Q2

REPORT INFORMATION
  Report Type: Spontaneous
  Country: FR (occurrence: FR)
  Receive Date: 20190530
  Receipt Date: 20190530
  Transmission Date: 20190711
  Serious: Yes (Hospitalization)
  Sender: FDA-Public Use
  Company Number: FR-ORION CORPORATION ORION PHARMA-19_00006251

PATIENT
  Age: 54 Year
  Sex: Female

DRUGS (12)
  1. KETOPROFENE [Concomitant]
     Active Substance: KETOPROFEN
     Route: 065
  2. GAVISCON [Concomitant]
     Active Substance: ALUMINUM HYDROXIDE\MAGNESIUM CARBONATE
     Route: 065
  3. CORTANCYL [Concomitant]
     Active Substance: PREDNISONE
     Dosage: STRENGTH: 5 MG
     Route: 065
  4. SPECIAFOLDINE [Concomitant]
     Active Substance: FOLIC ACID
     Dosage: STRENGTH: 5 MG
     Route: 065
  5. DAFALGAN [Concomitant]
     Active Substance: ACETAMINOPHEN
     Route: 065
  6. AERIUS [Concomitant]
     Dosage: STRENGTH: 5MG
     Route: 065
  7. CHLORHYDRATE  FLUOXETINE [Concomitant]
     Route: 065
  8. COLCHICINE. [Concomitant]
     Active Substance: COLCHICINE
     Route: 065
  9. IMETH [Suspect]
     Active Substance: METHOTREXATE SODIUM
     Dosage: STRENGTH: 2.5 MG, NON- ADMINISTERED
     Route: 048
  10. ASPEGIC [Concomitant]
     Route: 065
  11. FLIXOTIDE [Concomitant]
     Active Substance: FLUTICASONE PROPIONATE
     Route: 065
  12. IMETH [Suspect]
     Active Substance: METHOTREXATE SODIUM
     Indication: CUTANEOUS LUPUS ERYTHEMATOSUS
     Dosage: STRENGTH: 10 MG
     Route: 048
     Dates: start: 201812

REACTIONS (5)
  - Wrong product administered [Recovered/Resolved]
  - Asthenia [Not Recovered/Not Resolved]
  - Thrombophlebitis [Recovering/Resolving]
  - Incorrect dose administered [Recovered/Resolved]
  - Infection [Recovered/Resolved]

NARRATIVE: CASE EVENT DATE: 201812
